FAERS Safety Report 10182757 (Version 1)
Quarter: 2014Q2

REPORT INFORMATION
  Report Type: Spontaneous
  Country: PL (occurrence: None)
  Receive Date: 20140516
  Receipt Date: 20140516
  Transmission Date: 20141212
  Serious: Yes (Other)
  Sender: FDA-Public Use
  Company Number: 2014GR_BP003498

PATIENT
  Age: 67 Year
  Sex: Male

DRUGS (2)
  1. ZASTERID [Suspect]
     Indication: BENIGN PROSTATIC HYPERPLASIA
     Dosage: 5 MG (5 MG, ONCE DAILY), ORAL?
     Route: 048
     Dates: start: 20140304, end: 20140318
  2. OMSAL [Suspect]
     Indication: BENIGN PROSTATIC HYPERPLASIA
     Dosage: 0.4 MG (0.4 MG, ONCE DAILY), ORAL
     Route: 048
     Dates: start: 20140304, end: 20140318

REACTIONS (7)
  - Drug ineffective [None]
  - Condition aggravated [None]
  - Polyuria [None]
  - Dysuria [None]
  - Bladder pain [None]
  - Urethral disorder [None]
  - Burning sensation [None]
